FAERS Safety Report 25984711 (Version 1)
Quarter: 2025Q4

REPORT INFORMATION
  Report Type: Report from Study
  Country: US (occurrence: US)
  Receive Date: 20251031
  Receipt Date: 20251031
  Transmission Date: 20260117
  Serious: No
  Sender: TRAVERE THERAPEUTICS
  Company Number: US-TRAVERE-2025TVT01767

PATIENT
  Age: 27 Year
  Sex: Male

DRUGS (6)
  1. FILSPARI [Suspect]
     Active Substance: SPARSENTAN
     Indication: IgA nephropathy
     Route: 048
     Dates: start: 202505
  2. JARDIANCE [Concomitant]
     Active Substance: EMPAGLIFLOZIN
  3. TARPEYO [Concomitant]
     Active Substance: BUDESONIDE
  4. PROZAC [Concomitant]
     Active Substance: FLUOXETINE HYDROCHLORIDE
  5. PROCARDIA [Concomitant]
     Active Substance: NIFEDIPINE
  6. VITAMIN D3 [Concomitant]
     Active Substance: CHOLECALCIFEROL

REACTIONS (2)
  - Vitamin D deficiency [Unknown]
  - Proteinuria [Unknown]

NARRATIVE: CASE EVENT DATE: 20250701
